FAERS Safety Report 5346354-3 (Version None)
Quarter: 2007Q2

REPORT INFORMATION
  Report Type: 
  Country: None (occurrence: None)
  Receive Date: 20070605
  Receipt Date: 20070525
  Transmission Date: 20071010
  Serious: Yes (Hospitalization)
  Sender: FDA-Public Use
  Company Number: US-PFIZER INC-2007042053

PATIENT
  Sex: Male
  Weight: 76.7 kg

DRUGS (2)
  1. SU-011,248 [Suspect]
     Indication: GASTROINTESTINAL STROMAL TUMOUR
     Route: 048
  2. PROTONIX [Concomitant]

REACTIONS (2)
  - ATRIAL FIBRILLATION [None]
  - HYPOTHYROIDISM [None]
